FAERS Safety Report 19928185 (Version 2)
Quarter: 2021Q4

REPORT INFORMATION
  Report Type: Other
  Country: AT (occurrence: AT)
  Receive Date: 20211007
  Receipt Date: 20211015
  Transmission Date: 20220304
  Serious: Yes (Other)
  Sender: FDA-Public Use
  Company Number: AT-ROCHE-2926384

PATIENT
  Age: 68 Year
  Sex: Female

DRUGS (4)
  1. PERTUZUMAB [Suspect]
     Active Substance: PERTUZUMAB
     Indication: HER2 positive breast cancer
     Dosage: MOST RECENT DOSE PRIOR TO THE EVENT: 28/APR/2017
     Route: 042
     Dates: start: 20170330
  2. TRASTUZUMAB [Suspect]
     Active Substance: TRASTUZUMAB
     Indication: HER2 positive breast cancer
     Dosage: MOST RECENT DOSE PRIOR TO THE EVENT: 28/APR/2017
     Route: 042
     Dates: start: 20170330
  3. VINORELBINE [Suspect]
     Active Substance: VINORELBINE TARTRATE
     Indication: HER2 positive breast cancer
     Route: 048
     Dates: start: 20170330, end: 20170811
  4. PENICILLIN V [Concomitant]
     Active Substance: PENICILLIN V
     Indication: Erysipelas
     Dates: start: 20210624

REACTIONS (1)
  - Erysipelas [Recovering/Resolving]

NARRATIVE: CASE EVENT DATE: 20210624
